FAERS Safety Report 24350846 (Version 1)
Quarter: 2024Q3

REPORT INFORMATION
  Report Type: Spontaneous
  Country: US (occurrence: US)
  Receive Date: 20240923
  Receipt Date: 20240923
  Transmission Date: 20241017
  Serious: Yes (Other)
  Sender: TEVA
  Company Number: US-TEVA-VS-3244363

PATIENT
  Sex: Female

DRUGS (2)
  1. AUSTEDO XR [Suspect]
     Active Substance: DEUTETRABENAZINE
     Indication: Tardive dyskinesia
     Route: 065
     Dates: start: 20240906, end: 20240911
  2. AUSTEDO XR [Suspect]
     Active Substance: DEUTETRABENAZINE
     Indication: Tardive dyskinesia
     Route: 065
     Dates: start: 20240912

REACTIONS (8)
  - Dyskinesia [Unknown]
  - Agitation [Unknown]
  - Musculoskeletal stiffness [Unknown]
  - Disturbance in attention [Unknown]
  - Pollakiuria [Unknown]
  - Dizziness [Unknown]
  - Tongue biting [Unknown]
  - Balance disorder [Unknown]

NARRATIVE: CASE EVENT DATE: 20240901
